FAERS Safety Report 5878278-7 (Version None)
Quarter: 2008Q3

REPORT INFORMATION
  Report Type: 
  Country: None (occurrence: None)
  Receive Date: 20080911
  Receipt Date: 20080909
  Transmission Date: 20090109
  Serious: Yes (Hospitalization)
  Sender: FDA-Public Use
  Company Number: DE-AVENTIS-200812396DE

PATIENT
  Age: 19 Year
  Sex: Female

DRUGS (3)
  1. LEFLUNOMIDE [Suspect]
     Dosage: DOSE: NOT REPORTED
     Route: 048
  2. ADALIMUMAB [Suspect]
     Dosage: DOSE: NOT REPORTED
  3. FLOXACILLIN SODIUM [Suspect]
     Dosage: DOSE: NOT REPORTED

REACTIONS (2)
  - CHOLESTASIS [None]
  - HEPATIC ENZYME INCREASED [None]
